FAERS Safety Report 17923982 (Version 1)
Quarter: 2020Q2

REPORT INFORMATION
  Report Type: Spontaneous
  Country: US (occurrence: US)
  Receive Date: 20200622
  Receipt Date: 20200622
  Transmission Date: 20200714
  Serious: No
  Sender: FDA-Public Use
  Company Number: US-MYLANLABS-2020M1054379

PATIENT
  Age: 75 Year
  Sex: Female
  Weight: 63 kg

DRUGS (2)
  1. DOXEPIN HYDROCHLORIDE CAPSULES, USP [Suspect]
     Active Substance: DOXEPIN HYDROCHLORIDE
     Indication: SLEEP DISORDER
     Dosage: 25 MILLIGRAM
     Route: 048
     Dates: start: 20200603
  2. DOXEPIN HYDROCHLORIDE CAPSULES, USP [Suspect]
     Active Substance: DOXEPIN HYDROCHLORIDE
     Indication: FIBROMYALGIA

REACTIONS (1)
  - Drug ineffective [Not Recovered/Not Resolved]

NARRATIVE: CASE EVENT DATE: 20200603
